FAERS Safety Report 6096653-5 (Version None)
Quarter: 2009Q1

REPORT INFORMATION
  Report Type: 
  Country: None (occurrence: None)
  Receive Date: 20090227
  Receipt Date: 20090113
  Transmission Date: 20090719
  Serious: No
  Sender: FDA-Public Use
  Company Number: US-BAYER-200911154NA

PATIENT
  Sex: Female

DRUGS (1)
  1. MIRENA [Suspect]
     Indication: CONTRACEPTION
     Route: 015
     Dates: start: 20080701

REACTIONS (7)
  - ACNE [None]
  - CHEST DISCOMFORT [None]
  - FATIGUE [None]
  - LOSS OF LIBIDO [None]
  - MOOD SWINGS [None]
  - VAGINAL DISCHARGE [None]
  - WEIGHT INCREASED [None]
